FAERS Safety Report 25675572 (Version 3)
Quarter: 2025Q3

REPORT INFORMATION
  Report Type: Report from Study
  Country: US (occurrence: US)
  Receive Date: 20250813
  Receipt Date: 20250909
  Transmission Date: 20251021
  Serious: Yes (Other)
  Sender: ABBVIE
  Company Number: US-ABBVIE-6409486

PATIENT
  Sex: Female

DRUGS (1)
  1. SKYRIZI [Suspect]
     Active Substance: RISANKIZUMAB-RZAA
     Indication: Product used for unknown indication
     Route: 058
     Dates: start: 20240101

REACTIONS (17)
  - Nasal obstruction [Recovering/Resolving]
  - Joint noise [Unknown]
  - Infection [Unknown]
  - Asthenia [Unknown]
  - Swelling face [Unknown]
  - Brain hypoxia [Recovering/Resolving]
  - Drug ineffective [Unknown]
  - Discharge [Unknown]
  - Fluid retention [Unknown]
  - Weight increased [Recovering/Resolving]
  - Arthralgia [Unknown]
  - Nervous system disorder [Recovering/Resolving]
  - Tooth abscess [Unknown]
  - Lymphadenitis [Recovering/Resolving]
  - Mental impairment [Unknown]
  - Generalised oedema [Recovering/Resolving]
  - Dyspnoea [Unknown]

NARRATIVE: CASE EVENT DATE: 20240101
